FAERS Safety Report 9475653 (Version 2)
Quarter: 2013Q3

REPORT INFORMATION
  Report Type: Spontaneous
  Country: JP (occurrence: JP)
  Receive Date: 20130826
  Receipt Date: 20130830
  Transmission Date: 20140515
  Serious: Yes (Other)
  Sender: FDA-Public Use
  Company Number: PHHY2013JP091592

PATIENT
  Age: 39 Year
  Sex: Male

DRUGS (3)
  1. TEGRETOL [Suspect]
     Indication: EPILEPSY
     Dosage: 400 MG, DAILY
     Route: 048
     Dates: start: 200906
  2. GABAPEN [Suspect]
     Indication: EPILEPSY
     Dosage: 800 MG, DAILY
     Route: 048
     Dates: start: 201008, end: 201308
  3. GABAPEN [Suspect]
     Dosage: 1200 MG, DAILY
     Route: 048
     Dates: start: 201308

REACTIONS (2)
  - Epilepsy [Unknown]
  - Blood creatine phosphokinase increased [Unknown]
